FAERS Safety Report 5301895-X (Version None)
Quarter: 2007Q2

REPORT INFORMATION
  Report Type: 
  Country: None (occurrence: None)
  Receive Date: 20070416
  Receipt Date: 20070416
  Transmission Date: 20071010
  Serious: Yes (Other)
  Sender: FDA-Public Use
  Company Number: None

PATIENT
  Age: 9 Year
  Sex: Female
  Weight: 29.4838 kg

DRUGS (2)
  1. ZELNORM [Suspect]
     Indication: CONSTIPATION
     Dosage: 1 TAB TWICE DIALY PO
     Route: 048
     Dates: start: 20070103, end: 20070407
  2. MIRALAX [Concomitant]

REACTIONS (1)
  - DIZZINESS [None]
